FAERS Safety Report 17026420 (Version 2)
Quarter: 2019Q4

REPORT INFORMATION
  Report Type: Spontaneous
  Country: CN (occurrence: CN)
  Receive Date: 20191113
  Receipt Date: 20191118
  Transmission Date: 20200122
  Serious: Yes (Other)
  Sender: FDA-Public Use
  Company Number: CN-009507513-1911CHN002365

PATIENT
  Age: 92 Year
  Sex: Female
  Weight: 50 kg

DRUGS (2)
  1. TIENAM [Suspect]
     Active Substance: CILASTATIN SODIUM\IMIPENEM
     Indication: ANTI-INFECTIVE THERAPY
     Dosage: 0.5 GRAM, QID
     Route: 041
     Dates: start: 20191017, end: 20191029
  2. SODIUM CHLORIDE. [Concomitant]
     Active Substance: SODIUM CHLORIDE
     Dosage: 100 MILLILITER, QID
     Route: 041
     Dates: start: 20191017, end: 20191029

REACTIONS (1)
  - Restlessness [Recovered/Resolved]

NARRATIVE: CASE EVENT DATE: 20191024
